FAERS Safety Report 8568984-8 (Version None)
Quarter: 2012Q3

REPORT INFORMATION
  Report Type: 
  Country: None (occurrence: None)
  Receive Date: 20120803
  Receipt Date: 20120802
  Transmission Date: 20120928
  Serious: Yes (Other)
  Sender: FDA-Public Use
  Company Number: PHEH2012US015150

PATIENT

DRUGS (2)
  1. CLOZARIL [Suspect]
  2. CLOZAPINE [Suspect]

REACTIONS (1)
  - NEOPLASM MALIGNANT [None]
